FAERS Safety Report 15568939 (Version 2)
Quarter: 2019Q1

REPORT INFORMATION
  Report Type: Report from Study
  Country: US (occurrence: US)
  Receive Date: 20181031
  Receipt Date: 20190129
  Transmission Date: 20190417
  Serious: Yes (Hospitalization)
  Sender: FDA-Public Use
  Company Number: US-ROCHE-2204710

PATIENT
  Age: 39 Year
  Sex: Male
  Weight: 122 kg

DRUGS (12)
  1. OCREVUS [Suspect]
     Active Substance: OCRELIZUMAB
     Indication: PRIMARY PROGRESSIVE MULTIPLE SCLEROSIS
     Route: 065
     Dates: start: 20171009
  2. OMEGA-3 ACID ETHYL ESTERS [Concomitant]
     Active Substance: OMEGA-3-ACID ETHYL ESTERS
  3. PROPRANOLOL [Concomitant]
     Active Substance: PROPRANOLOL HYDROCHLORIDE
  4. TERIFLUNOMIDE. [Suspect]
     Active Substance: TERIFLUNOMIDE
     Indication: PRODUCT USED FOR UNKNOWN INDICATION
     Route: 065
  5. GABAPENTIN. [Concomitant]
     Active Substance: GABAPENTIN
  6. LURASIDONE [Concomitant]
     Active Substance: LURASIDONE
     Indication: SUICIDAL IDEATION
  7. VILAZODONE [Concomitant]
     Active Substance: VILAZODONE
  8. OMEGA-3 ACID ETHYL ESTERS [Concomitant]
     Active Substance: OMEGA-3-ACID ETHYL ESTERS
  9. CHOLECALCIFEROL [Concomitant]
     Active Substance: CHOLECALCIFEROL
  10. LURASIDONE [Concomitant]
     Active Substance: LURASIDONE
     Indication: PAIN
  11. ALCOHOL. [Concomitant]
     Active Substance: ALCOHOL
  12. LURASIDONE [Concomitant]
     Active Substance: LURASIDONE
     Indication: DEPRESSION

REACTIONS (7)
  - Multiple sclerosis relapse [Recovered/Resolved]
  - Feeling hot [Unknown]
  - Dizziness [Unknown]
  - Headache [Unknown]
  - Hemiparesis [Unknown]
  - Fatigue [Unknown]
  - Flushing [Unknown]

NARRATIVE: CASE EVENT DATE: 20171010
